FAERS Safety Report 6222540-5 (Version None)
Quarter: 2009Q2

REPORT INFORMATION
  Report Type: 
  Country: None (occurrence: None)
  Receive Date: 20090611
  Receipt Date: 20090604
  Transmission Date: 20091009
  Serious: No
  Sender: FDA-Public Use
  Company Number: US-JNJFOC-20090602598

PATIENT
  Sex: Male
  Weight: 133.36 kg

DRUGS (4)
  1. FENTANYL TRANSDERMAL SYSTEM [Suspect]
     Indication: BACK PAIN
     Route: 062
  2. LISINOPRIL [Concomitant]
     Indication: HYPERTENSION
     Route: 048
  3. HYZAAR [Concomitant]
     Indication: HYPERTENSION
     Dosage: 50 MG - 12.5 MG
     Route: 048
  4. GLYBURIDE [Concomitant]
     Indication: DIABETES MELLITUS
     Dosage: ONCE IN AM AND ONCE IN PM
     Route: 048

REACTIONS (1)
  - WRONG TECHNIQUE IN DRUG USAGE PROCESS [None]
